FAERS Safety Report 11058507 (Version 1)
Quarter: 2015Q2

REPORT INFORMATION
  Report Type: Spontaneous
  Country: US (occurrence: None)
  Receive Date: 20150422
  Receipt Date: 20150422
  Transmission Date: 20150821
  Serious: Yes (Hospitalization)
  Sender: FDA-Public Use
  Company Number: None

PATIENT
  Age: 68 Year
  Sex: Male
  Weight: 103.4 kg

DRUGS (1)
  1. SIMVASTATIN. [Suspect]
     Active Substance: SIMVASTATIN
     Indication: HYPERLIPIDAEMIA
     Dosage: 1/2 TAB  AT BEDTIME  PO
     Route: 048
     Dates: start: 20100428, end: 20100614

REACTIONS (2)
  - Fall [None]
  - Rhabdomyolysis [None]

NARRATIVE: CASE EVENT DATE: 20100614
